FAERS Safety Report 5647046-3 (Version None)
Quarter: 2008Q1

REPORT INFORMATION
  Report Type: 
  Country: None (occurrence: None)
  Receive Date: 20080131
  Receipt Date: 20071206
  Transmission Date: 20080703
  Serious: No
  Sender: FDA-Public Use
  Company Number: 163-21880-07120444

PATIENT
  Age: 61 Year
  Sex: Female

DRUGS (2)
  1. REVLIMID [Suspect]
     Indication: MULTIPLE MYELOMA
     Dosage: 15 MG, DAILY X 21 DAYS, ORAL ; 25 MG, DAILY X 21 DAYS, ORAL
     Route: 048
     Dates: start: 20070927, end: 20071101
  2. REVLIMID [Suspect]
     Indication: MULTIPLE MYELOMA
     Dosage: 15 MG, DAILY X 21 DAYS, ORAL ; 25 MG, DAILY X 21 DAYS, ORAL
     Route: 048
     Dates: start: 20071206

REACTIONS (5)
  - ANOREXIA [None]
  - ARTHRALGIA [None]
  - FATIGUE [None]
  - MYALGIA [None]
  - NAUSEA [None]
